FAERS Safety Report 8342927-4 (Version None)
Quarter: 2012Q2

REPORT INFORMATION
  Report Type: 
  Country: None (occurrence: None)
  Receive Date: 20120508
  Receipt Date: 20120427
  Transmission Date: 20120825
  Serious: Yes (Other)
  Sender: FDA-Public Use
  Company Number: CA-JNJFOC-20120414255

PATIENT
  Sex: Female
  Weight: 99 kg

DRUGS (2)
  1. REMICADE [Suspect]
     Indication: COLITIS ULCERATIVE
     Route: 042
     Dates: start: 20120409
  2. REMICADE [Suspect]
     Route: 042
     Dates: start: 20111117

REACTIONS (7)
  - VOMITING [None]
  - MYALGIA [None]
  - HEADACHE [None]
  - NAUSEA [None]
  - RECTAL HAEMORRHAGE [None]
  - ANAL PRURITUS [None]
  - EXFOLIATIVE RASH [None]
